FAERS Safety Report 18802785 (Version 1)
Quarter: 2021Q1

REPORT INFORMATION
  Report Type: Other
  Country: VN (occurrence: VN)
  Receive Date: 20210129
  Receipt Date: 20210129
  Transmission Date: 20210419
  Serious: Yes (Other)
  Sender: FDA-Public Use
  Company Number: VN-ROCHE-2753879

PATIENT

DRUGS (3)
  1. CARBOPLATIN. [Suspect]
     Active Substance: CARBOPLATIN
     Indication: LUNG ADENOCARCINOMA
     Dosage: CARBOPLATIN AUC = 5 INTRAVENOUS INFUSION ON DAY 1
     Route: 042
  2. BEVACIZUMAB. [Suspect]
     Active Substance: BEVACIZUMAB
     Indication: LUNG ADENOCARCINOMA
     Dosage: ON DAY 1
     Route: 042
  3. PACLITAXEL. [Suspect]
     Active Substance: PACLITAXEL
     Indication: LUNG ADENOCARCINOMA
     Dosage: ON DAY 1
     Route: 042

REACTIONS (12)
  - Erythropenia [Unknown]
  - Leukopenia [Unknown]
  - Hepatic enzyme increased [Unknown]
  - Haemoglobin decreased [Unknown]
  - Metastases to central nervous system [Unknown]
  - Metastases to lung [Unknown]
  - Thrombocytopenia [Unknown]
  - Metastases to bone [Unknown]
  - Hypoaesthesia [Unknown]
  - Metastases to liver [Unknown]
  - Nausea [Unknown]
  - Vomiting [Unknown]
